FAERS Safety Report 18930892 (Version 3)
Quarter: 2021Q3

REPORT INFORMATION
  Report Type: Report from Study
  Country: US (occurrence: US)
  Receive Date: 20210223
  Receipt Date: 20210820
  Transmission Date: 20211014
  Serious: No
  Sender: FDA-Public Use
  Company Number: NVSC2021US033785

PATIENT
  Age: 69 Year

DRUGS (1)
  1. COSENTYX [Suspect]
     Active Substance: SECUKINUMAB
     Indication: PRODUCT USED FOR UNKNOWN INDICATION
     Dosage: 300 MG/KG, QMO
     Route: 058
     Dates: start: 20200721

REACTIONS (2)
  - Arthralgia [Unknown]
  - Biliary colic [Unknown]

NARRATIVE: CASE EVENT DATE: 202007
